FAERS Safety Report 6110400-X (Version None)
Quarter: 2009Q1

REPORT INFORMATION
  Report Type: 
  Country: None (occurrence: None)
  Receive Date: 20090310
  Receipt Date: 20090223
  Transmission Date: 20090719
  Serious: Yes (Other)
  Sender: FDA-Public Use
  Company Number: CH-GENENTECH-278480

PATIENT
  Age: 60 Year
  Sex: Female

DRUGS (5)
  1. RITUXIMAB [Suspect]
     Indication: POLYMYOSITIS
  2. MYCOPHENOLATE MOFETIL [Suspect]
     Indication: POLYMYOSITIS
     Dosage: 2 G, UNK
     Route: 065
     Dates: start: 20050601
  3. PREDNISONE [Concomitant]
     Indication: DRUG USE FOR UNKNOWN INDICATION
     Dosage: 10 MG, QD
  4. PREDNISONE [Concomitant]
     Dosage: 15 MG, QD
  5. METHOTREXATE [Concomitant]
     Indication: DRUG USE FOR UNKNOWN INDICATION

REACTIONS (1)
  - COLITIS [None]
